FAERS Safety Report 7624526-2 (Version None)
Quarter: 2011Q3

REPORT INFORMATION
  Report Type: 
  Country: None (occurrence: None)
  Receive Date: 20110712
  Receipt Date: 20110629
  Transmission Date: 20111222
  Serious: Yes (Hospitalization)
  Sender: FDA-Public Use
  Company Number: 2011HGS-002373

PATIENT
  Sex: Female

DRUGS (1)
  1. BENLYSTA [Suspect]
     Indication: SYSTEMIC LUPUS ERYTHEMATOSUS
     Dosage: 10 MG, 1 IN 14 D, INTRAVENOUS DRIP
     Route: 041
     Dates: start: 20110601

REACTIONS (6)
  - DYSPNOEA [None]
  - SCAB [None]
  - NAUSEA [None]
  - MIGRAINE [None]
  - SKIN REACTION [None]
  - BRONCHITIS [None]
